FAERS Safety Report 4380577-5 (Version None)
Quarter: 2004Q2

REPORT INFORMATION
  Report Type: 
  Country: None (occurrence: None)
  Receive Date: 20040618
  Receipt Date: 20030130
  Transmission Date: 20050107
  Serious: Yes (Hospitalization, Disabling, Other)
  Sender: FDA-Public Use
  Company Number: US-MERCK-0302USA00066

PATIENT
  Age: 63 Year
  Sex: Male
  Weight: 102 kg

DRUGS (18)
  1. AUGMENTIN '125' [Concomitant]
     Route: 065
  2. ASPIRIN [Concomitant]
     Route: 065
  3. TENORMIN [Concomitant]
     Route: 065
  4. TENORMIN [Concomitant]
     Route: 065
  5. TAGAMET [Concomitant]
     Route: 065
  6. PLAVIX [Concomitant]
     Route: 065
  7. MOTRIN [Concomitant]
     Route: 065
  8. RELAFEN [Concomitant]
     Route: 065
  9. NITROSTAT [Concomitant]
     Route: 065
  10. VIOXX [Suspect]
     Indication: BACK PAIN
     Route: 048
     Dates: start: 20000621, end: 20000901
  11. VIOXX [Suspect]
     Route: 048
     Dates: start: 20010101
  12. VIOXX [Suspect]
     Route: 048
     Dates: start: 20000101, end: 20000601
  13. VIOXX [Suspect]
     Indication: PERICARDITIS
     Route: 048
     Dates: start: 20000621, end: 20000901
  14. VIOXX [Suspect]
     Route: 048
     Dates: start: 20010101
  15. VIOXX [Suspect]
     Route: 048
     Dates: start: 20000101, end: 20000601
  16. ZOLOFT [Concomitant]
     Route: 065
  17. ZOCOR [Concomitant]
     Route: 048
  18. TEMAZEPAM [Concomitant]
     Route: 065

REACTIONS (24)
  - ABSCESS LIMB [None]
  - ANGINA PECTORIS [None]
  - CARPAL TUNNEL SYNDROME [None]
  - CERVICAL SPINAL STENOSIS [None]
  - CERVICOBRACHIAL SYNDROME [None]
  - CHEST PAIN [None]
  - CORONARY ARTERY DISEASE [None]
  - CORONARY ARTERY STENOSIS [None]
  - CYSTITIS [None]
  - DIZZINESS [None]
  - EMOTIONAL DISTRESS [None]
  - ERECTILE DYSFUNCTION [None]
  - GASTRITIS [None]
  - GASTROINTESTINAL DISORDER [None]
  - HAEMATEMESIS [None]
  - INJECTION SITE INFECTION [None]
  - NAUSEA [None]
  - OEDEMA PERIPHERAL [None]
  - PLEURAL EFFUSION [None]
  - POSTOPERATIVE INFECTION [None]
  - POSTPERICARDIOTOMY SYNDROME [None]
  - RETROSTERNAL INFECTION [None]
  - SPONDYLOSIS [None]
  - ULNAR NERVE INJURY [None]
